FAERS Safety Report 22063151 (Version 1)
Quarter: 2023Q1

REPORT INFORMATION
  Report Type: Report from Study
  Country: BR (occurrence: BR)
  Receive Date: 20230306
  Receipt Date: 20230306
  Transmission Date: 20230417
  Serious: Yes (Other)
  Sender: FDA-Public Use
  Company Number: BR-CELLTRION INC.-2023BR004551

PATIENT

DRUGS (7)
  1. INFLIXIMAB [Suspect]
     Active Substance: INFLIXIMAB
     Indication: Rheumatoid arthritis
     Dosage: 3 AMPOULES (228MG), STARTING DOSE ON DAY 0
     Route: 042
     Dates: start: 20230216
  2. INFLIXIMAB [Suspect]
     Active Substance: INFLIXIMAB
     Dosage: 228MG AFTER 15 DAYS
     Route: 042
  3. INFLIXIMAB [Suspect]
     Active Substance: INFLIXIMAB
     Dosage: 228MG, AFTER 30 DAYS
     Route: 042
  4. INFLIXIMAB [Suspect]
     Active Substance: INFLIXIMAB
     Dosage: 228 MG EVERY 8 WEEKS, MAINTENANCE DOSE
     Route: 042
  5. DULOXETINE [Concomitant]
     Active Substance: DULOXETINE
     Indication: Fibromyalgia
     Dosage: 1 PILL PER DAY (START: 5 YEARS AGO)
     Route: 048
  6. METHOTREXATE SODIUM [Concomitant]
     Active Substance: METHOTREXATE SODIUM
     Indication: Rheumatoid arthritis
     Dosage: 10 PILLS PER WEEK (START: 2022)
     Route: 048
     Dates: start: 2022
  7. ETHINYL ESTRADIOL\GESTODENE [Concomitant]
     Active Substance: ETHINYL ESTRADIOL\GESTODENE
     Indication: Contraception
     Dosage: 1 PILL PER DAY (START: 10 YEARS AGO)
     Route: 048

REACTIONS (5)
  - Hypersensitivity [Recovered/Resolved]
  - Skin ulcer [Recovered/Resolved]
  - Contusion [Recovered/Resolved]
  - Overdose [Unknown]
  - Off label use [Unknown]

NARRATIVE: CASE EVENT DATE: 20230216
